FAERS Safety Report 12687260 (Version 1)
Quarter: 2016Q3

REPORT INFORMATION
  Report Type: Spontaneous
  Country: JP (occurrence: JP)
  Receive Date: 20160826
  Receipt Date: 20160826
  Transmission Date: 20161109
  Serious: Yes (Death, Hospitalization, Other)
  Sender: FDA-Public Use
  Company Number: JP-BRISTOL-MYERS SQUIBB COMPANY-BMS-2016-050576

PATIENT
  Age: 89 Year
  Sex: Male
  Weight: 45.6 kg

DRUGS (7)
  1. DIFENIDOL [Concomitant]
     Indication: DIZZINESS
     Dosage: 1 TAB, TID
     Route: 048
     Dates: start: 20090303, end: 20160509
  2. MIYA-BM [Concomitant]
     Active Substance: CLOSTRIDIUM BUTYRICUM SPORES STRAIN M-55
     Indication: PRODUCT USED FOR UNKNOWN INDICATION
     Dosage: 1 TAB, TID
     Route: 065
     Dates: start: 20121222, end: 20160509
  3. ELIQUIS [Suspect]
     Active Substance: APIXABAN
     Indication: CEREBROVASCULAR ACCIDENT PROPHYLAXIS
     Dosage: 2.5 UNK, UNK
     Route: 048
     Dates: start: 20151028
  4. CARNACULIN                         /00088101/ [Concomitant]
     Indication: DIZZINESS
     Dosage: 1 TAB, TID
     Route: 048
     Dates: start: 20080121, end: 20160509
  5. SUCRALFATE. [Concomitant]
     Active Substance: SUCRALFATE
     Indication: GASTRITIS
     Dosage: 1 TAB, TID
     Route: 048
     Dates: start: 20110711, end: 20160509
  6. FLUITRAN [Concomitant]
     Active Substance: TRICHLORMETHIAZIDE
     Indication: HYPERTENSION
     Dosage: 0.5 TAB, QD
     Route: 048
     Dates: start: 20110314, end: 20160509
  7. PRAVASTATIN SODIUM. [Concomitant]
     Active Substance: PRAVASTATIN SODIUM
     Indication: HYPERLIPIDAEMIA
     Dosage: 1 TAB, TID
     Route: 065
     Dates: start: 20100722, end: 20160509

REACTIONS (3)
  - Atrial fibrillation [Unknown]
  - Brain oedema [Fatal]
  - Embolic stroke [Fatal]

NARRATIVE: CASE EVENT DATE: 20160510
